FAERS Safety Report 10452042 (Version 1)
Quarter: 2014Q3

REPORT INFORMATION
  Report Type: Spontaneous
  Country: GB (occurrence: GB)
  Receive Date: 20140915
  Receipt Date: 20140915
  Transmission Date: 20150326
  Serious: Yes (Disabling)
  Sender: FDA-Public Use
  Company Number: GB-ACCORD-025806

PATIENT
  Age: 68 Year
  Sex: Male
  Weight: 73.18 kg

DRUGS (25)
  1. COCODAMOL [Concomitant]
     Active Substance: ACETAMINOPHEN\CODEINE PHOSPHATE
     Dates: start: 20140429
  2. MATRIFEN [Concomitant]
     Active Substance: FENTANYL
     Dates: start: 20140729
  3. ALLEVYN [Concomitant]
     Dates: start: 20140728
  4. GLYCEROL [Concomitant]
     Active Substance: GLYCERIN
     Dates: start: 20140529
  5. LOPERAMIDE [Concomitant]
     Active Substance: LOPERAMIDE
     Dates: start: 20140604, end: 20140605
  6. LAXIDO [Concomitant]
     Active Substance: POLYETHYLENE GLYCOL 3350\POTASSIUM CHLORIDE\SODIUM BICARBONATE\SODIUM CHLORIDE
     Dates: start: 20140529
  7. AMITRIPTYLINE [Suspect]
     Active Substance: AMITRIPTYLINE
     Indication: PRODUCT USED FOR UNKNOWN INDICATION
     Dates: start: 20140429
  8. IRON [Concomitant]
     Active Substance: IRON
     Dates: start: 20140429, end: 20140527
  9. PREDNISOLONE/PREDNISOLONE ACETATE/PREDNISOLONE BUTYLACETATE/PREDNISOLONE CAPROATE/PREDNISOLONE HEMIS [Concomitant]
     Dates: start: 20140604
  10. METOCLOPRAMIDE. [Concomitant]
     Active Substance: METOCLOPRAMIDE
     Dates: start: 20140520
  11. SYTRON [Concomitant]
     Dates: start: 20140604, end: 20140704
  12. FENTANYL. [Concomitant]
     Active Substance: FENTANYL
     Dates: start: 20140522
  13. COLGATE DURAPHAT [Concomitant]
     Active Substance: SODIUM FLUORIDE
     Dates: start: 20140429
  14. FLUCONAZOLE. [Concomitant]
     Active Substance: FLUCONAZOLE
     Dates: start: 20140807, end: 20140814
  15. TAMSULOSIN/TAMSULOSIN HYDROCHLORIDE [Concomitant]
     Dates: start: 20140429
  16. PREDNISOLONE. [Concomitant]
     Active Substance: PREDNISOLONE
     Dates: start: 20140429, end: 20140527
  17. SODIUM FEREDETATE [Concomitant]
     Active Substance: SODIUM FEREDETATE
     Dates: start: 20140729
  18. ATORVASTATIN [Concomitant]
     Active Substance: ATORVASTATIN
     Dates: start: 20140429
  19. CHLORHEXIDINE/CHLORHEXIDINE DIACETATE/CHLORHEXIDINE GLUCONATE/CHLORHEXIDINE HYDROCHLORIDE [Concomitant]
     Dates: start: 20140429
  20. AMLODIPINE [Concomitant]
     Active Substance: AMLODIPINE BESYLATE
     Dates: start: 20140429
  21. ACIDEX [Concomitant]
     Dates: start: 20140609
  22. OMEPRAZOLE. [Concomitant]
     Active Substance: OMEPRAZOLE
     Dates: start: 20140429
  23. SUCRALFATE. [Concomitant]
     Active Substance: SUCRALFATE
     Dates: start: 20140604, end: 20140629
  24. DOXAZOSIN [Concomitant]
     Active Substance: DOXAZOSIN\DOXAZOSIN MESYLATE
     Dates: start: 20140729, end: 20140826
  25. BIOTENE DRY MOUTH [Concomitant]
     Dates: start: 20140729

REACTIONS (3)
  - Muscle twitching [Recovered/Resolved]
  - Tremor [Recovered/Resolved]
  - Feeling abnormal [Recovered/Resolved]

NARRATIVE: CASE EVENT DATE: 20140826
